FAERS Safety Report 20521026 (Version 3)
Quarter: 2022Q1

REPORT INFORMATION
  Report Type: Report from Study
  Country: US (occurrence: US)
  Receive Date: 20220225
  Receipt Date: 20220311
  Transmission Date: 20220423
  Serious: Yes (Hospitalization, Other)
  Sender: FDA-Public Use
  Company Number: US-BRISTOL-MYERS SQUIBB COMPANY-BMS-2021-133764

PATIENT
  Age: 71 Year
  Sex: Female
  Weight: 49 kg

DRUGS (12)
  1. BMS-986299 [Suspect]
     Active Substance: BMS-986299
     Indication: Breast cancer
     Dosage: 2000 MICROGRAM
     Route: 036
     Dates: start: 20210420, end: 20210713
  2. IPILIMUMAB [Suspect]
     Active Substance: IPILIMUMAB
     Indication: Breast cancer
     Dosage: 49 MILLIGRAM
     Route: 042
     Dates: start: 20210420, end: 20210929
  3. NIVOLUMAB [Suspect]
     Active Substance: NIVOLUMAB
     Indication: Breast cancer
     Dosage: 480 MILLIGRAM
     Route: 042
     Dates: start: 20210420, end: 20210929
  4. CALCIUM CARBONATE\CHOLECALCIFEROL [Concomitant]
     Active Substance: CALCIUM CARBONATE\CHOLECALCIFEROL
     Indication: Product used for unknown indication
     Dosage: 1 DOSAGE FORM = 2 UNIT NOS, BID
     Route: 048
     Dates: start: 20170711
  5. ONDANSETRON [Concomitant]
     Active Substance: ONDANSETRON
     Indication: Product used for unknown indication
     Dosage: 8 MILLIGRAM, Q8H
     Route: 048
     Dates: start: 20210421
  6. ACETAMINOPHEN [Concomitant]
     Active Substance: ACETAMINOPHEN
     Indication: Product used for unknown indication
     Dosage: 500 MILLIGRAM, AS NEEDED
     Route: 048
     Dates: start: 20210428
  7. DENOSUMAB [Concomitant]
     Active Substance: DENOSUMAB
     Indication: Product used for unknown indication
     Dosage: 120 MILLIGRAM, Q4WK,Q4S
     Route: 058
     Dates: start: 20180227
  8. FISH OIL [Concomitant]
     Active Substance: FISH OIL
     Indication: Product used for unknown indication
     Dosage: 1 DOSAGE FORM = 1 UNIT NOS, ONCE
     Route: 048
     Dates: start: 20160210
  9. VITAMINS NOS [Concomitant]
     Active Substance: VITAMINS
     Indication: Product used for unknown indication
     Dosage: 1 DOSAGE FORM = 1 UNIT NOS, ONCE
     Route: 048
     Dates: start: 20150210
  10. SENOKOT [Concomitant]
     Active Substance: SENNOSIDES
     Indication: Product used for unknown indication
     Dosage: 1 DOSAGE FORM = 1 UNIT NOS, ONCE
     Route: 048
     Dates: start: 20210326
  11. ULTRAM [Concomitant]
     Active Substance: TRAMADOL HYDROCHLORIDE
     Indication: Product used for unknown indication
     Dosage: 50 MILLIGRAM, Q8H
     Route: 048
     Dates: start: 20210326
  12. SODIUM CHLORIDE [Concomitant]
     Active Substance: SODIUM CHLORIDE
     Indication: Product used for unknown indication
     Dosage: 1 DOSAGE FORM = 20 UNIT NOS , AS NEEDED
     Route: 042
     Dates: start: 20180226

REACTIONS (1)
  - Hepatic enzyme increased [Recovered/Resolved]

NARRATIVE: CASE EVENT DATE: 20211110
